FAERS Safety Report 6093149-1 (Version None)
Quarter: 2009Q1

REPORT INFORMATION
  Report Type: 
  Country: None (occurrence: None)
  Receive Date: 20090226
  Receipt Date: 20090213
  Transmission Date: 20090719
  Serious: Yes (Other)
  Sender: FDA-Public Use
  Company Number: US-PFIZER INC-2008154314

PATIENT
  Sex: Female
  Weight: 54.422 kg

DRUGS (9)
  1. LYRICA [Suspect]
     Indication: PAIN
     Dosage: UNK
     Route: 048
     Dates: start: 20051220, end: 20060929
  2. LYRICA [Suspect]
     Indication: RADICULITIS BRACHIAL
  3. MINOCYCLINE HCL [Suspect]
     Indication: BLISTER
  4. MINOCYCLINE HCL [Suspect]
     Indication: CYST
  5. MECLOZINE HYDROCHLORIDE [Concomitant]
     Dosage: UNK
  6. CELEBREX [Concomitant]
     Dosage: UNK
  7. METHADONE HYDROCHLORIDE [Concomitant]
     Dosage: UNK
  8. PROVIGIL [Concomitant]
     Dosage: UNK
  9. TOPAMAX [Concomitant]
     Dosage: UNK

REACTIONS (7)
  - BLISTER [None]
  - CYST [None]
  - OEDEMA PERIPHERAL [None]
  - RASH [None]
  - RENAL DISORDER [None]
  - SKIN EXFOLIATION [None]
  - SPINAL NERVE STIMULATOR IMPLANTATION [None]
